FAERS Safety Report 7099860-8 (Version None)
Quarter: 2010Q4

REPORT INFORMATION
  Report Type: 
  Country: None (occurrence: None)
  Receive Date: 20101112
  Receipt Date: 20101103
  Transmission Date: 20110411
  Serious: Yes (Death)
  Sender: FDA-Public Use
  Company Number: US-US-EMD SERONO, INC.-7025894

PATIENT
  Sex: Male

DRUGS (1)
  1. SEROSTIM [Suspect]
     Indication: HIV WASTING SYNDROME
     Dates: start: 20080101, end: 20101102

REACTIONS (1)
  - DEATH [None]
